FAERS Safety Report 25519737 (Version 1)
Quarter: 2025Q3

REPORT INFORMATION
  Report Type: Spontaneous
  Country: US (occurrence: US)
  Receive Date: 20250704
  Receipt Date: 20250704
  Transmission Date: 20251021
  Serious: No
  Sender: PFIZER
  Company Number: US-PFIZER INC-202500134144

PATIENT
  Age: 49 Year
  Sex: Female

DRUGS (6)
  1. PAXLOVID [Suspect]
     Active Substance: NIRMATRELVIR\RITONAVIR
     Indication: COVID-19 treatment
     Dosage: 1 PACK BID
     Dates: start: 20250623, end: 20250628
  2. BACLOFEN [Concomitant]
     Active Substance: BACLOFEN
  3. PROGESTERONE [Concomitant]
     Active Substance: PROGESTERONE
  4. ESTRADIOL [Concomitant]
     Active Substance: ESTRADIOL
  5. VITAMIN D+K [Concomitant]
  6. MAGNESIUM [Concomitant]
     Active Substance: MAGNESIUM

REACTIONS (2)
  - COVID-19 [Not Recovered/Not Resolved]
  - Disease recurrence [Not Recovered/Not Resolved]

NARRATIVE: CASE EVENT DATE: 20250702
